FAERS Safety Report 21243052 (Version 3)
Quarter: 2022Q4

REPORT INFORMATION
  Report Type: Spontaneous
  Country: JP (occurrence: JP)
  Receive Date: 20220823
  Receipt Date: 20221011
  Transmission Date: 20230112
  Serious: Yes (Hospitalization, Other)
  Sender: FDA-Public Use
  Company Number: JP-GLAXOSMITHKLINE-JP2018JPN240865

PATIENT

DRUGS (15)
  1. BENLYSTA [Suspect]
     Active Substance: BELIMUMAB
     Indication: Systemic lupus erythematosus
     Dosage: 200 MG, WE
     Dates: start: 20190207, end: 20190404
  2. BENLYSTA [Suspect]
     Active Substance: BELIMUMAB
     Indication: Systemic lupus erythematosus
     Dosage: 10 MG/KG
     Route: 041
     Dates: start: 20180402, end: 20180830
  3. BENLYSTA [Suspect]
     Active Substance: BELIMUMAB
     Dosage: 10 MG/KG
     Route: 041
     Dates: start: 20180927, end: 20181210
  4. MEDROL [Suspect]
     Active Substance: METHYLPREDNISOLONE
     Indication: Systemic lupus erythematosus
     Dosage: 4 MG, 1D
     Route: 048
  5. CELLCEPT [Suspect]
     Active Substance: MYCOPHENOLATE MOFETIL
  6. PLAQUENIL [Concomitant]
     Active Substance: HYDROXYCHLOROQUINE SULFATE
     Indication: Systemic lupus erythematosus
     Dosage: UNK MG
  7. PREDNISOLONE [Concomitant]
     Active Substance: PREDNISOLONE
     Indication: Systemic lupus erythematosus
     Dosage: 4 MG
     Route: 048
  8. LIPITOR [Concomitant]
     Active Substance: ATORVASTATIN CALCIUM
  9. LANSOPRAZOLE [Concomitant]
     Active Substance: LANSOPRAZOLE
     Indication: Prophylaxis against gastrointestinal ulcer
  10. AZILSARTAN KAMEDOXOMIL [Concomitant]
     Active Substance: AZILSARTAN KAMEDOXOMIL
  11. CALBLOCK [Concomitant]
     Active Substance: AZELNIDIPINE
  12. ONEALFA [Concomitant]
     Active Substance: ALFACALCIDOL
  13. CALCIUM ASPARTATE [Concomitant]
     Active Substance: CALCIUM ASPARTATE
  14. WARFARIN POTASSIUM [Concomitant]
     Active Substance: WARFARIN POTASSIUM
  15. FEBUXOSTAT [Concomitant]
     Active Substance: FEBUXOSTAT

REACTIONS (1)
  - Enterocolitis [Recovered/Resolved]

NARRATIVE: CASE EVENT DATE: 20190828
